FAERS Safety Report 16323907 (Version 3)
Quarter: 2019Q4

REPORT INFORMATION
  Report Type: Spontaneous
  Country: JP (occurrence: JP)
  Receive Date: 20190517
  Receipt Date: 20191210
  Transmission Date: 20200122
  Serious: Yes (Hospitalization, Other)
  Sender: FDA-Public Use
  Company Number: JP-ASTELLAS-2019JP008742

PATIENT
  Age: 32 Year
  Sex: Female
  Weight: 50 kg

DRUGS (19)
  1. PROGRAF [Suspect]
     Active Substance: TACROLIMUS
     Indication: IMMUNOSUPPRESSION
     Dosage: UNK UNK, TWICE DAILY
     Route: 050
     Dates: start: 20180822, end: 20180824
  2. METHYLPREDNISOLONE ACETATE. [Concomitant]
     Active Substance: METHYLPREDNISOLONE ACETATE
     Indication: IMMUNOSUPPRESSION
     Route: 041
     Dates: start: 20180821, end: 20180821
  3. METHYLPREDNISOLONE ACETATE. [Concomitant]
     Active Substance: METHYLPREDNISOLONE ACETATE
     Route: 041
     Dates: start: 20180822, end: 20180824
  4. METHYLPREDNISOLONE ACETATE. [Concomitant]
     Active Substance: METHYLPREDNISOLONE ACETATE
     Route: 041
     Dates: start: 20180825, end: 20180827
  5. PROGRAF [Suspect]
     Active Substance: TACROLIMUS
     Indication: IMMUNOSUPPRESSION
     Route: 048
     Dates: start: 20180904
  6. CELLCEPT [Concomitant]
     Active Substance: MYCOPHENOLATE MOFETIL\MYCOPHENOLATE MOFETIL HYDROCHLORIDE
     Route: 050
     Dates: start: 20180908
  7. VICCILLIN                          /00000501/ [Concomitant]
     Indication: ANTIBIOTIC PROPHYLAXIS
     Route: 041
     Dates: start: 20180821, end: 20180823
  8. LASIX [Concomitant]
     Active Substance: FUROSEMIDE
     Indication: POLYURIA
     Route: 041
     Dates: start: 20180822, end: 20180824
  9. METHYLPREDNISOLONE ACETATE. [Concomitant]
     Active Substance: METHYLPREDNISOLONE ACETATE
     Route: 041
     Dates: start: 20180828, end: 20180902
  10. CELLCEPT [Concomitant]
     Active Substance: MYCOPHENOLATE MOFETIL\MYCOPHENOLATE MOFETIL HYDROCHLORIDE
     Route: 050
     Dates: start: 20180824, end: 20180828
  11. CELLCEPT [Concomitant]
     Active Substance: MYCOPHENOLATE MOFETIL\MYCOPHENOLATE MOFETIL HYDROCHLORIDE
     Indication: IMMUNOSUPPRESSION
     Route: 050
     Dates: start: 20180822, end: 20180823
  12. NICARDIPINE HYDROCHLORIDE. [Concomitant]
     Active Substance: NICARDIPINE HYDROCHLORIDE
     Indication: BLOOD PRESSURE DECREASED
     Dosage: 40 MG/DAY, UNKNOWN FREQ.
     Route: 041
     Dates: start: 20180823, end: 20180824
  13. RITUXIMAB. [Concomitant]
     Active Substance: RITUXIMAB
     Indication: IMMUNE TOLERANCE INDUCTION
     Dosage: 400 MG/DAY, UNKNOWN FREQ.
     Route: 065
  14. CELLCEPT [Concomitant]
     Active Substance: MYCOPHENOLATE MOFETIL\MYCOPHENOLATE MOFETIL HYDROCHLORIDE
     Route: 050
     Dates: start: 20180829, end: 20180907
  15. PROGRAF [Suspect]
     Active Substance: TACROLIMUS
     Indication: IMMUNOSUPPRESSION
     Dosage: UNK UNK, UNKNOWN FREQ.
     Route: 041
     Dates: start: 20180824, end: 20180903
  16. FLUMARIN                           /00780601/ [Concomitant]
     Indication: ANTIBIOTIC PROPHYLAXIS
     Route: 041
     Dates: start: 20180821, end: 20180823
  17. PRECEDEX [Concomitant]
     Active Substance: DEXMEDETOMIDINE HYDROCHLORIDE
     Indication: SEDATION
     Dosage: 600 UG/DAY, UNKNOWN FREQ.
     Route: 041
     Dates: start: 20180822, end: 20180827
  18. HANP [Concomitant]
     Active Substance: CARPERITIDE
     Indication: POLYURIA
     Dosage: 2000 UG/DAY, UNKNOWN FREQ.
     Route: 041
     Dates: start: 20180822, end: 20180824
  19. NICARDIPINE HYDROCHLORIDE. [Concomitant]
     Active Substance: NICARDIPINE HYDROCHLORIDE
     Dosage: 50 MG/DAY, UNKNOWN FREQ.
     Route: 041
     Dates: start: 20180825, end: 20180903

REACTIONS (4)
  - Pneumonia aspiration [Recovered/Resolved]
  - Respiratory disorder [Recovered/Resolved]
  - Off label use [Unknown]
  - Septic shock [Recovered/Resolved]

NARRATIVE: CASE EVENT DATE: 20180822
